FAERS Safety Report 9447773 (Version 1)
Quarter: 2013Q3

REPORT INFORMATION
  Report Type: Spontaneous
  Country: US (occurrence: None)
  Receive Date: 20130807
  Receipt Date: 20130807
  Transmission Date: 20140515
  Serious: No
  Sender: FDA-Public Use
  Company Number: None

PATIENT
  Age: 15 Year
  Sex: Female
  Weight: 52 kg

DRUGS (1)
  1. SEROQUEL [Suspect]
     Indication: BIPOLAR DISORDER
     Dosage: 100 MG AM, 200 MG PM BID ORAL
     Route: 048
     Dates: start: 20130601, end: 20130730

REACTIONS (5)
  - Overdose [None]
  - Convulsion [None]
  - Nausea [None]
  - Diplopia [None]
  - Electrocardiogram QT prolonged [None]
